FAERS Safety Report 12958826 (Version 1)
Quarter: 2016Q4

REPORT INFORMATION
  Report Type: Spontaneous
  Country: US (occurrence: US)
  Receive Date: 20161117
  Receipt Date: 20161117
  Transmission Date: 20170207
  Serious: Yes (Hospitalization)
  Sender: FDA-Public Use
  Company Number: None

PATIENT
  Age: 56 Year
  Sex: Female

DRUGS (13)
  1. WARFARIN [Suspect]
     Active Substance: WARFARIN
     Indication: ATRIAL FIBRILLATION
     Route: 048
     Dates: start: 20160701, end: 20161006
  2. ATORVASTATIN [Concomitant]
     Active Substance: ATORVASTATIN
  3. OMEPRAZOLE. [Concomitant]
     Active Substance: OMEPRAZOLE
  4. DAPSONE. [Concomitant]
     Active Substance: DAPSONE
  5. ENTECAVIR. [Concomitant]
     Active Substance: ENTECAVIR
  6. ISONIAZID. [Concomitant]
     Active Substance: ISONIAZID
  7. LEVOTHYROXINE. [Concomitant]
     Active Substance: LEVOTHYROXINE
  8. MULTIVITAMIN [Concomitant]
     Active Substance: VITAMINS
  9. CALCITRIOL. [Concomitant]
     Active Substance: CALCITRIOL
  10. LOSARTAN. [Concomitant]
     Active Substance: LOSARTAN
  11. CALCIUM  + VI TAMIN D [Concomitant]
  12. PREDNISONE. [Concomitant]
     Active Substance: PREDNISONE
  13. PYRIDOXINE [Concomitant]
     Active Substance: PYRIDOXINE

REACTIONS (4)
  - Gastrointestinal haemorrhage [None]
  - Diverticulum intestinal haemorrhagic [None]
  - Gastric ulcer [None]
  - International normalised ratio increased [None]

NARRATIVE: CASE EVENT DATE: 20161006
